FAERS Safety Report 9080318 (Version 14)
Quarter: 2015Q1

REPORT INFORMATION
  Report Type: Report from Study
  Country: FR (occurrence: FR)
  Receive Date: 20130130
  Receipt Date: 20150225
  Transmission Date: 20150721
  Serious: Yes (Hospitalization)
  Sender: FDA-Public Use
  Company Number: FR-ROCHE-1181284

PATIENT
  Age: 57 Year
  Sex: Female
  Weight: 68 kg

DRUGS (5)
  1. PERTUZUMAB [Suspect]
     Active Substance: PERTUZUMAB
     Route: 042
     Dates: start: 20130410
  2. TOPOTECAN HYDROCHLORIDE. [Suspect]
     Active Substance: TOPOTECAN HYDROCHLORIDE
     Indication: OVARIAN CANCER
     Dosage: DOSE ALSO REPORTED AS 1.25MG/M^2. LAST DOSE PRIOR TO ANOREXIA WAS ON 07/JAN/2013, LAST DOSE PRIOR TO
     Route: 042
     Dates: start: 20130107, end: 20130402
  3. PERTUZUMAB [Suspect]
     Active Substance: PERTUZUMAB
     Indication: OVARIAN CANCER
     Dosage: LOADING DOSE?LAST DOSE PRIOR TO VOMITING, LOSS OF WEIGHT AND ALTERATION OF GENERAL STATUS: 11/MAR/20
     Route: 042
     Dates: start: 20130107, end: 20130107
  4. TOPOTECAN HYDROCHLORIDE. [Suspect]
     Active Substance: TOPOTECAN HYDROCHLORIDE
     Dosage: DOSE ALSO REPORTED AS 1.25MG/M^2. LAST DOSE PRIOR TO ANOREXIA WAS ON 07/JAN/2013, LAST DOSE PRIOR TO
     Route: 042
     Dates: start: 20130410
  5. PERTUZUMAB [Suspect]
     Active Substance: PERTUZUMAB
     Dosage: LAST DOSE PRIOR TO VOMITING, LOSS OF WEIGHT AND ALTERATION OF GENERAL STATUS: 11/MAR/2013, TEMPORARI
     Route: 042
     Dates: start: 20130128, end: 20130402

REACTIONS (2)
  - Vomiting [Recovered/Resolved]
  - Decreased appetite [Recovered/Resolved]

NARRATIVE: CASE EVENT DATE: 20130115
